FAERS Safety Report 6682042-9 (Version None)
Quarter: 2010Q2

REPORT INFORMATION
  Report Type: 
  Country: None (occurrence: None)
  Receive Date: 20100414
  Receipt Date: 20100414
  Transmission Date: 20101027
  Serious: Yes (Life-Threatening, Hospitalization, Other)
  Sender: FDA-Public Use
  Company Number: None

PATIENT
  Age: 72 Year
  Sex: Female

DRUGS (7)
  1. AMOXICILLIN [Suspect]
     Indication: DENTAL OPERATION
     Dosage: 1 TABLET
     Dates: start: 20100409, end: 20100409
  2. CARVEDILOL [Concomitant]
  3. AMLODIPINE [Concomitant]
  4. ALENDRONATE SODIUM [Concomitant]
  5. PRAVASTATIN [Concomitant]
  6. HYDROCHLOROTHIAZIDE [Concomitant]
  7. LORAZEPAM [Concomitant]

REACTIONS (7)
  - ANAPHYLACTIC REACTION [None]
  - BUNDLE BRANCH BLOCK RIGHT [None]
  - CARDIO-RESPIRATORY ARREST [None]
  - CONTUSION [None]
  - EPISTAXIS [None]
  - FALL [None]
  - PNEUMOTHORAX [None]
